FAERS Safety Report 14256880 (Version 1)
Quarter: 2017Q4

REPORT INFORMATION
  Report Type: Spontaneous
  Country: US (occurrence: US)
  Receive Date: 20171206
  Receipt Date: 20171206
  Transmission Date: 20180321
  Serious: Yes (Other)
  Sender: FDA-Public Use
  Company Number: US-APOPHARMA USA, INC.-2017AP022237

PATIENT
  Age: 70 Year
  Sex: Female

DRUGS (4)
  1. CYTARABINE. [Suspect]
     Active Substance: CYTARABINE
     Indication: STEM CELL TRANSPLANT
     Dosage: 100 MG/M2, UNKNOWN
     Route: 065
  2. ETOPOSIDE. [Suspect]
     Active Substance: ETOPOSIDE
     Indication: STEM CELL TRANSPLANT
     Dosage: 100 MG/M2, UNKNOWN
     Route: 065
  3. BICNU [Suspect]
     Active Substance: CARMUSTINE
     Indication: STEM CELL TRANSPLANT
     Dosage: 150 MG/M2, UNKNOWN
     Route: 065
  4. ALKERAN [Suspect]
     Active Substance: MELPHALAN
     Indication: STEM CELL TRANSPLANT
     Dosage: 110 MG/M2, UNKNOWN
     Route: 065

REACTIONS (1)
  - Febrile neutropenia [Unknown]
